FAERS Safety Report 19787051 (Version 1)
Quarter: 2021Q3

REPORT INFORMATION
  Report Type: Spontaneous
  Country: US (occurrence: US)
  Receive Date: 20210903
  Receipt Date: 20210903
  Transmission Date: 20211014
  Serious: Yes (Other)
  Sender: FDA-Public Use
  Company Number: US-PFIZER INC-202101103444

PATIENT
  Age: 46 Year
  Sex: Male

DRUGS (1)
  1. VIAGRA [Suspect]
     Active Substance: SILDENAFIL CITRATE
     Dosage: 8 TABLETS OF 100 MG

REACTIONS (6)
  - COVID-19 [Unknown]
  - Vomiting [Unknown]
  - Vision blurred [Unknown]
  - Headache [Unknown]
  - Accidental overdose [Unknown]
  - Prescription drug used without a prescription [Unknown]
